FAERS Safety Report 12085174 (Version 1)
Quarter: 2016Q1

REPORT INFORMATION
  Report Type: Report from Study
  Country: VE (occurrence: VE)
  Receive Date: 20160217
  Receipt Date: 20160217
  Transmission Date: 20160526
  Serious: Yes (Other)
  Sender: FDA-Public Use
  Company Number: VE-ABBVIE-16P-178-1559707-00

PATIENT
  Age: 52 Year
  Sex: Female

DRUGS (2)
  1. ZEMPLAR [Suspect]
     Active Substance: PARICALCITOL
     Indication: PRODUCT USED FOR UNKNOWN INDICATION
     Route: 042
     Dates: start: 20130501, end: 201402
  2. ZEMPLAR [Suspect]
     Active Substance: PARICALCITOL
     Route: 042

REACTIONS (1)
  - Parathyroidectomy [Unknown]

NARRATIVE: CASE EVENT DATE: 20150819
